FAERS Safety Report 4275067-4 (Version None)
Quarter: 2004Q1

REPORT INFORMATION
  Report Type: 
  Country: None (occurrence: None)
  Receive Date: 20040116
  Receipt Date: 20040105
  Transmission Date: 20041129
  Serious: Yes (Death)
  Sender: FDA-Public Use
  Company Number: 2004010001

PATIENT
  Age: 80 Year
  Sex: Female

DRUGS (1)
  1. DORAL [Suspect]
     Indication: INSOMNIA
     Dosage: 15 MG DAILY, PO
     Route: 048
     Dates: start: 20030820, end: 20030910

REACTIONS (4)
  - BLOOD CREATININE INCREASED [None]
  - CONDITION AGGRAVATED [None]
  - MULTIPLE MYELOMA [None]
  - RENAL IMPAIRMENT [None]
